FAERS Safety Report 8180240-9 (Version None)
Quarter: 2012Q1

REPORT INFORMATION
  Report Type: 
  Country: None (occurrence: None)
  Receive Date: 20120302
  Receipt Date: 20100928
  Transmission Date: 20120608
  Serious: No
  Sender: FDA-Public Use
  Company Number: US-GLAXOSMITHKLINE-A0849713A

PATIENT
  Age: 40 Year
  Sex: Female

DRUGS (2)
  1. CLOBETASOL PROPIONATE [Suspect]
     Indication: DERMATOSIS
     Dosage: 1APP PER DAY
     Route: 061
     Dates: start: 20100120
  2. ZINC SULFATE [Concomitant]

REACTIONS (3)
  - SCAR [None]
  - ACNE [None]
  - PRODUCT QUALITY ISSUE [None]
